FAERS Safety Report 4314483-9 (Version None)
Quarter: 2004Q1

REPORT INFORMATION
  Report Type: 
  Country: None (occurrence: None)
  Receive Date: 20040309
  Receipt Date: 20040301
  Transmission Date: 20041129
  Serious: Yes (Death, Other)
  Sender: FDA-Public Use
  Company Number: US-BRISTOL-MYERS SQUIBB COMPANY-12520813

PATIENT
  Age: 49 Year
  Sex: Male

DRUGS (5)
  1. PACLITAXEL [Suspect]
     Indication: KAPOSI'S SARCOMA
     Route: 042
  2. DIDANOSINE EC [Interacting]
     Indication: HIV INFECTION
  3. LOPINAVIR [Interacting]
     Indication: HIV INFECTION
  4. RITONAVIR [Interacting]
     Indication: HIV INFECTION
  5. DELAVIRDINE [Interacting]
     Indication: HIV INFECTION

REACTIONS (11)
  - ARTHRALGIA [None]
  - CARDIAC DISORDER [None]
  - DRUG INTERACTION [None]
  - ELECTROMECHANICAL DISSOCIATION [None]
  - HYPOTENSION [None]
  - LEUKOPENIA [None]
  - MUCOSAL INFLAMMATION [None]
  - MYALGIA [None]
  - PNEUMONIA STREPTOCOCCAL [None]
  - PULMONARY ARTERIAL PRESSURE INCREASED [None]
  - PULMONARY EMBOLISM [None]
